FAERS Safety Report 7693104-1 (Version None)
Quarter: 2011Q3

REPORT INFORMATION
  Report Type: 
  Country: None (occurrence: None)
  Receive Date: 20110819
  Receipt Date: 20110817
  Transmission Date: 20111222
  Serious: Yes (Death)
  Sender: FDA-Public Use
  Company Number: MX-SANOFI-AVENTIS-2011SA052896

PATIENT
  Age: 68 Year
  Sex: Female

DRUGS (3)
  1. FUROSEMIDE [Concomitant]
     Route: 048
     Dates: start: 20110331, end: 20110618
  2. FLUOXETINE [Concomitant]
     Indication: DEPRESSION
     Route: 048
     Dates: end: 20110618
  3. ENOXAPARIN SODIUM [Suspect]
     Route: 058
     Dates: start: 20110402, end: 20110618

REACTIONS (1)
  - CEREBROVASCULAR ACCIDENT [None]
